FAERS Safety Report 23423457 (Version 1)
Quarter: 2024Q1

REPORT INFORMATION
  Report Type: Spontaneous
  Country: CN (occurrence: CN)
  Receive Date: 20240119
  Receipt Date: 20240119
  Transmission Date: 20240410
  Serious: Yes (Hospitalization, Other)
  Sender: FDA-Public Use
  Company Number: CN-PFIZER INC-PV202400006035

PATIENT
  Age: 60 Year
  Sex: Female

DRUGS (1)
  1. EPIRUBICIN [Suspect]
     Active Substance: EPIRUBICIN
     Indication: Breast cancer metastatic
     Dosage: 175 MG, 1X/DAY
     Route: 041
     Dates: start: 20231227, end: 20231227

REACTIONS (1)
  - Myocardial ischaemia [Recovering/Resolving]

NARRATIVE: CASE EVENT DATE: 20231228
